FAERS Safety Report 4594873-X (Version None)
Quarter: 2005Q1

REPORT INFORMATION
  Report Type: 
  Country: None (occurrence: None)
  Receive Date: 20050224
  Receipt Date: 20030815
  Transmission Date: 20050727
  Serious: Yes (Disabling)
  Sender: FDA-Public Use
  Company Number: GXKR2003GB00622

PATIENT
  Age: 42 Year
  Sex: Male

DRUGS (2)
  1. DICLOFENAC (NGX) (DICLOFENAC) [Suspect]
     Indication: EYE LASER SURGERY
     Dosage: QH, EYE IRRIGATION
  2. ANTIBIOTICS FOR TOPICAL USE (NO INGREDIENTS/SUBSTANCES) [Concomitant]

REACTIONS (9)
  - CORNEAL EPITHELIUM DISORDER [None]
  - CORNEAL INFILTRATES [None]
  - CORNEAL SCAR [None]
  - CORNEAL TRANSPLANT [None]
  - CORNEAL ULCER [None]
  - EYE DISORDER [None]
  - EYE OEDEMA [None]
  - NECROSIS [None]
  - POST PROCEDURAL COMPLICATION [None]
